FAERS Safety Report 24196718 (Version 1)
Quarter: 2024Q3

REPORT INFORMATION
  Report Type: Report from Study
  Country: ZA (occurrence: ZA)
  Receive Date: 20240810
  Receipt Date: 20240810
  Transmission Date: 20241016
  Serious: Yes (Death)
  Sender: ABBVIE
  Company Number: ZA-ABBOTT-2024A-1385723

PATIENT
  Age: 79 Year
  Sex: Male

DRUGS (25)
  1. CREON [Suspect]
     Active Substance: PANCRELIPASE AMYLASE\PANCRELIPASE LIPASE\PANCRELIPASE PROTEASE
     Indication: Pancreatic failure
     Dosage: 150 MG TAKE ONE CAPSULE ONCE A DAY|? 10000
     Route: 048
  2. POTASSIUM CHLORIDE [Concomitant]
     Active Substance: POTASSIUM CHLORIDE
     Indication: Hypokalaemia
     Dosage: 600 MG TAKE ONE TABLET ONCE A DAY?SR
     Route: 048
  3. Pantocid [Concomitant]
     Indication: Ulcer
     Dosage: 40 MG TAKE ONE TABLET IN THE MORNING
     Route: 048
  4. FUROSEMIDE [Concomitant]
     Active Substance: FUROSEMIDE
     Indication: Hypertension
     Dosage: 40 MG TAKE HALF A TABLET IN THE MORNING
     Route: 048
  5. PRAMIPEXOLE DIHYDROCHLORIDE [Concomitant]
     Active Substance: PRAMIPEXOLE DIHYDROCHLORIDE
     Indication: Parkinson^s disease
     Dosage: 1 MG TAKE ONE TABLET DAILY
     Route: 048
  6. PRAMIPEXOLE DIHYDROCHLORIDE [Concomitant]
     Active Substance: PRAMIPEXOLE DIHYDROCHLORIDE
     Indication: Parkinson^s disease
     Dosage: 0.25 MG TAKE TWO TABLETS IN THE EVENING
     Route: 048
  7. CLOPIDOGREL BISULFATE [Concomitant]
     Active Substance: CLOPIDOGREL BISULFATE
     Indication: Thrombosis prophylaxis
     Dosage: 75 MG TAKE ONE TABLET IN THE MORNING
     Route: 048
  8. FAMUCAPS [Concomitant]
     Indication: Product used for unknown indication
     Dosage: TAKE TWO CAPSULES THREE TIMES A DAY
     Route: 048
  9. BOOST B12 [Concomitant]
     Indication: Product used for unknown indication
     Dosage: 100 MCG ONCE A DAY SPRAY UNDER THE TONGUE?160 SPRAYS
     Route: 048
  10. BETAHISTINE HYDROCHLORIDE [Suspect]
     Active Substance: BETAHISTINE HYDROCHLORIDE
     Indication: Vertigo
     Dosage: 24 MG TAKE ONE TABLET TWICE A DAY
     Route: 048
  11. MUPIROCIN [Concomitant]
     Active Substance: MUPIROCIN
     Indication: Product used for unknown indication
     Dosage: 20 MG APPLY ONCE A DAY FOR FIVE DAYS
     Route: 061
  12. BETAHISTINE HYDROCHLORIDE [Concomitant]
     Active Substance: BETAHISTINE HYDROCHLORIDE
     Indication: Vertigo
     Dosage: 24 MG TAKE ONE TABLET TWICE A DAY
     Route: 048
  13. FOLIC ACID [Concomitant]
     Active Substance: FOLIC ACID
     Indication: Coronary artery disease
     Dosage: 5 MG TAKE ONE TABLET IN THE MORNING
     Route: 048
  14. NEUROBION [Concomitant]
     Active Substance: CYANOCOBALAMIN\PYRIDOXINE\THIAMINE
     Indication: Product used for unknown indication
     Dosage: TAKE ONE TABLET IN THE MORNING
     Route: 048
  15. ECOTRIN [Concomitant]
     Active Substance: ASPIRIN
     Indication: Thrombosis prophylaxis
     Dosage: 81 MG TAKE ONE TABLET IN THE MORNING
     Route: 048
  16. Lipogen [Concomitant]
     Indication: Blood cholesterol abnormal
     Dosage: 80 MG TAKE A TABLET OF AT NIGHT
     Route: 048
  17. DICLOFENAC SODIUM [Concomitant]
     Active Substance: DICLOFENAC\DICLOFENAC SODIUM
     Indication: Pain
     Dosage: 50 MG TAKE ONE TABLET THREE TIMES A DAY
     Route: 048
  18. ALGINIC ACID\ALUMINUM HYDROXIDE\MAGNESIUM TRISILICATE\SODIUM BICARBONA [Concomitant]
     Active Substance: ALGINIC ACID\ALUMINUM HYDROXIDE\MAGNESIUM TRISILICATE\SODIUM BICARBONATE
     Indication: Product used for unknown indication
     Dosage: 2 MG TAKE ONE TABLET THREE TIMES A DAY
     Route: 048
  19. EMLA [Concomitant]
     Active Substance: LIDOCAINE\PRILOCAINE
     Indication: Product used for unknown indication
     Dosage: APPLY TO THE AFFECTED AREA DAILY FOR 5 DAYS
  20. Dis chem paracetamol [Concomitant]
     Indication: Product used for unknown indication
     Dosage: 500 MG TAKE 1-2 TABLET(S) THREE TIMES A DAY
     Route: 048
  21. ALSAN [Concomitant]
     Indication: Product used for unknown indication
     Dosage: 2 % APPLY TO THE AFFECTED AREA TWICE A DAY
     Route: 061
  22. Tears naturale ii [Concomitant]
     Indication: Product used for unknown indication
     Dosage: AS PRESCRIBED?OPD
  23. ERGOCALCIFEROL [Concomitant]
     Active Substance: ERGOCALCIFEROL
     Indication: Product used for unknown indication
     Dosage: 50000 IU TAKE ONE TABLET TWICE A WEEK
     Route: 048
  24. Somnil [Concomitant]
     Indication: Product used for unknown indication
     Dosage: 25 MG TAKE ONE TABLET AT BEDTIME
     Route: 048
  25. PECTROLYTE [Concomitant]
     Indication: Product used for unknown indication
     Dosage: TAKE 20ML FOUR TIMES A DAY
     Route: 048

REACTIONS (1)
  - Death [Fatal]
